FAERS Safety Report 9092748 (Version 1)
Quarter: 2013Q1

REPORT INFORMATION
  Report Type: Spontaneous
  Country: US (occurrence: US)
  Receive Date: 20130201
  Receipt Date: 20130201
  Transmission Date: 20140127
  Serious: Yes (Hospitalization)
  Sender: FDA-Public Use
  Company Number: US-BAYER-2013-012852

PATIENT
  Age: 38 Year
  Sex: Female
  Weight: 63.04 kg

DRUGS (6)
  1. YASMIN [Suspect]
  2. YAZ [Suspect]
  3. FEXOFENADINE HYDROCHLORIDE [Concomitant]
     Dosage: 180 MG, UNK
  4. EFEXOR XL [Concomitant]
     Dosage: 37.5 MG, UNK
  5. PRAVASTATIN [Concomitant]
  6. ALLERGY MEDICATION [Concomitant]

REACTIONS (1)
  - Pulmonary embolism [None]
